FAERS Safety Report 7397538-4 (Version None)
Quarter: 2011Q2

REPORT INFORMATION
  Report Type: 
  Country: None (occurrence: None)
  Receive Date: 20110401
  Receipt Date: 20110401
  Transmission Date: 20111010
  Serious: Yes (Hospitalization, Other)
  Sender: FDA-Public Use
  Company Number: None

PATIENT
  Sex: Female
  Weight: 90.7194 kg

DRUGS (1)
  1. IMIPRAMINE [Suspect]
     Indication: INCONTINENCE
     Dosage: 50MG 1 AT BED
     Dates: start: 20100801, end: 20101001

REACTIONS (1)
  - MUSCLE TWITCHING [None]
